FAERS Safety Report 5015379-X (Version None)
Quarter: 2006Q2

REPORT INFORMATION
  Report Type: 
  Country: None (occurrence: None)
  Receive Date: 20060530
  Receipt Date: 20060530
  Transmission Date: 20061013
  Serious: No
  Sender: FDA-Public Use
  Company Number: None

PATIENT
  Age: 36 Year
  Sex: Male

DRUGS (12)
  1. OLANZAPINE [Suspect]
     Indication: DEMENTIA
     Dosage: 20 MG PO Q DAY
     Route: 048
     Dates: start: 20060201, end: 20060501
  2. FUROSEMIDE [Concomitant]
  3. ENALAPRIL [Concomitant]
  4. KALETRA [Concomitant]
  5. SEPTRA DS [Concomitant]
  6. COREG [Concomitant]
  7. ZYPREXA [Concomitant]
  8. PREVACID [Concomitant]
  9. COMBIVIR [Concomitant]
  10. REMERON [Concomitant]
  11. CLARITHROMYCIN [Concomitant]
  12. ETHAMBUTOL [Concomitant]

REACTIONS (2)
  - ELECTROCARDIOGRAM QT CORRECTED INTERVAL PROLONGED [None]
  - ELECTROCARDIOGRAM QT PROLONGED [None]
